FAERS Safety Report 5256720-2 (Version None)
Quarter: 2007Q1

REPORT INFORMATION
  Report Type: 
  Country: None (occurrence: None)
  Receive Date: 20070306
  Receipt Date: 20070223
  Transmission Date: 20070707
  Serious: Yes (Other)
  Sender: FDA-Public Use
  Company Number: DEWYE774726FEB07

PATIENT
  Sex: Male

DRUGS (1)
  1. VENLAFAXINE HCL [Suspect]
     Indication: DEPRESSION
     Dosage: UNKNOWN; PATIENT HIMSELF REGULARLY INCREASED DOSE

REACTIONS (3)
  - DRUG ABUSER [None]
  - DRUG DEPENDENCE [None]
  - INTENTIONAL OVERDOSE [None]
